FAERS Safety Report 10233128 (Version 2)
Quarter: 2014Q3

REPORT INFORMATION
  Report Type: Spontaneous
  Country: US (occurrence: US)
  Receive Date: 20140612
  Receipt Date: 20140822
  Transmission Date: 20150326
  Serious: Yes (Hospitalization)
  Sender: FDA-Public Use
  Company Number: US-BAYER-2014-085722

PATIENT
  Age: 27 Year
  Sex: Female
  Weight: 45.35 kg

DRUGS (1)
  1. MIRENA [Suspect]
     Active Substance: LEVONORGESTREL
     Indication: CONTRACEPTION
     Dosage: 20 MCG/24HR, CONT
     Route: 015
     Dates: start: 20090714, end: 20110314

REACTIONS (14)
  - Abdominal pain lower [None]
  - Peritoneal adhesions [None]
  - Fear [None]
  - Device dislocation [None]
  - Menorrhagia [Recovered/Resolved]
  - Anxiety [None]
  - Pain [None]
  - Emotional distress [None]
  - Internal injury [None]
  - Abdominal discomfort [None]
  - Uterine perforation [None]
  - Injury [None]
  - Depression [None]
  - Depressed mood [None]
